FAERS Safety Report 12323539 (Version 1)
Quarter: 2016Q2

REPORT INFORMATION
  Report Type: Spontaneous
  Country: US (occurrence: US)
  Receive Date: 20160502
  Receipt Date: 20160502
  Transmission Date: 20160815
  Serious: Yes (Other)
  Sender: FDA-Public Use
  Company Number: US-BAYER-2016-083652

PATIENT
  Age: 23 Year
  Sex: Female

DRUGS (1)
  1. SKYLA [Suspect]
     Active Substance: LEVONORGESTREL
     Dosage: 14 MCG/24HR, CONT
     Route: 015
     Dates: start: 2015

REACTIONS (5)
  - Blood immunoglobulin G increased [None]
  - Blood immunoglobulin A increased [None]
  - Abdominal pain [None]
  - Colitis ulcerative [None]
  - Procedural pain [None]

NARRATIVE: CASE EVENT DATE: 2015
